FAERS Safety Report 21151144 (Version 1)
Quarter: 2022Q3

REPORT INFORMATION
  Report Type: Spontaneous
  Country: DE (occurrence: DE)
  Receive Date: 20220730
  Receipt Date: 20220730
  Transmission Date: 20221026
  Serious: Yes (Other)
  Sender: FDA-Public Use
  Company Number: DE-AMGEN-DEUSP2022126541

PATIENT
  Age: 47 Year
  Sex: Female

DRUGS (1)
  1. BLINATUMOMAB [Suspect]
     Active Substance: BLINATUMOMAB
     Indication: Acute lymphocytic leukaemia
     Dosage: UNK
     Route: 065

REACTIONS (8)
  - COVID-19 pneumonia [Recovered/Resolved]
  - Pericardial effusion [Unknown]
  - Ascites [Unknown]
  - Cytomegalovirus infection reactivation [Unknown]
  - Venoocclusive disease [Recovered/Resolved]
  - Pleural effusion [Unknown]
  - BK virus infection [Unknown]
  - Cystitis [Unknown]
